FAERS Safety Report 8861479 (Version 1)
Quarter: 2012Q4

REPORT INFORMATION
  Report Type: 
  Country: US (occurrence: US)
  Receive Date: 20121025
  Receipt Date: 20121025
  Transmission Date: 20130627
  Serious: No
  Sender: FDA-Public Use
  Company Number: US-AMGEN-USASP2012014348

PATIENT
  Sex: Male
  Weight: 97.51 kg

DRUGS (3)
  1. ENBREL [Suspect]
     Indication: PRODUCT USED FOR UNKNOWN INDICATION
     Dosage: 50 mg, qwk
     Route: 058
  2. SIMPONI [Concomitant]
  3. OMEPRAZOLE [Concomitant]
     Dosage: 20 mg, UNK

REACTIONS (1)
  - Fungal skin infection [Unknown]
